FAERS Safety Report 18690622 (Version 3)
Quarter: 2021Q1

REPORT INFORMATION
  Report Type: Report from Study
  Country: CN (occurrence: CN)
  Receive Date: 20210101
  Receipt Date: 20210326
  Transmission Date: 20210419
  Serious: Yes (Hospitalization)
  Sender: FDA-Public Use
  Company Number: CN-ASTRAZENECA-2020SF74439

PATIENT
  Age: 20571 Day
  Sex: Female

DRUGS (41)
  1. DURVALUMAB. [Suspect]
     Active Substance: DURVALUMAB
     Indication: CERVIX CARCINOMA
     Route: 042
     Dates: start: 20201119, end: 20201119
  2. CISPLATIN. [Suspect]
     Active Substance: CISPLATIN
     Indication: CERVIX CARCINOMA
     Route: 042
     Dates: start: 20201027, end: 20201027
  3. NADROPARIN CALCIUM INJECTION [Concomitant]
     Indication: THROMBOSIS
     Route: 058
     Dates: start: 20200918, end: 20200923
  4. ONDANSETRON HYDROCHLORIDE TABLETS [Concomitant]
     Active Substance: ONDANSETRON HYDROCHLORIDE
     Indication: VOMITING
     Route: 048
     Dates: start: 20201103, end: 20201105
  5. RECOMBINANT HUMAN GRANULOCYTE COLONY?STIMULATING FACTOR INJECTION [Concomitant]
     Indication: WHITE BLOOD CELL COUNT DECREASED
     Route: 058
     Dates: start: 20201105, end: 20201106
  6. RECOMBINANT HUMAN GRANULOCYTE COLONY?STIMULATING FACTOR INJECTION [Concomitant]
     Indication: WHITE BLOOD CELL COUNT DECREASED
     Route: 058
     Dates: start: 20201109, end: 20201110
  7. RECOMBINANT HUMAN GRANULOCYTE COLONY?STIMULATING FACTOR INJECTION [Concomitant]
     Indication: WHITE BLOOD CELL COUNT DECREASED
     Route: 058
     Dates: start: 20201116, end: 20201117
  8. RECOMBINANT HUMAN GRANULOCYTE COLONY?STIMULATING FACTOR INJECTION [Concomitant]
     Indication: WHITE BLOOD CELL COUNT DECREASED
     Route: 058
     Dates: start: 20201121, end: 20201122
  9. DURVALUMAB. [Suspect]
     Active Substance: DURVALUMAB
     Indication: CERVIX CARCINOMA
     Route: 042
     Dates: start: 20201231, end: 20201231
  10. CISPLATIN. [Suspect]
     Active Substance: CISPLATIN
     Indication: CERVIX CARCINOMA
     Route: 042
     Dates: start: 20201127, end: 20201127
  11. ONDANSETRON HYDROCHLORIDE TABLETS [Concomitant]
     Active Substance: ONDANSETRON HYDROCHLORIDE
     Indication: VOMITING
     Route: 048
     Dates: start: 20201127, end: 20201129
  12. MUCOPOLYSACCHARIDE POLYSULFATE CREAM [Concomitant]
     Indication: RASH
     Dosage: 14.0G ONCE/SINGLE ADMINISTRATION
     Route: 061
     Dates: start: 20201027, end: 20201128
  13. RECOMBINANT HUMAN GRANULOCYTE COLONY?STIMULATING FACTOR INJECTION [Concomitant]
     Indication: WHITE BLOOD CELL COUNT DECREASED
     Route: 058
     Dates: start: 20201105, end: 20201106
  14. CISPLATIN. [Suspect]
     Active Substance: CISPLATIN
     Indication: CERVIX CARCINOMA
     Route: 042
     Dates: start: 20201020, end: 20201020
  15. CISPLATIN. [Suspect]
     Active Substance: CISPLATIN
     Indication: CERVIX CARCINOMA
     Route: 042
     Dates: start: 20201119, end: 20201119
  16. ONDANSETRON HYDROCHLORIDE TABLETS [Concomitant]
     Active Substance: ONDANSETRON HYDROCHLORIDE
     Indication: VOMITING
     Route: 048
     Dates: start: 20201013, end: 20201016
  17. ONDANSETRON HYDROCHLORIDE TABLETS [Concomitant]
     Active Substance: ONDANSETRON HYDROCHLORIDE
     Indication: ANTIBIOTIC PROPHYLAXIS
     Route: 048
     Dates: start: 20201103, end: 20201105
  18. MUCOPOLYSACCHARIDE POLYSULFATE CREAM [Concomitant]
     Indication: RHEUMATOID ARTHRITIS
     Dosage: 14.0G ONCE/SINGLE ADMINISTRATION
     Route: 061
     Dates: start: 20201027, end: 20201128
  19. RECOMBINANT HUMAN GRANULOCYTE COLONY?STIMULATING FACTOR INJECTION [Concomitant]
     Indication: WHITE BLOOD CELL COUNT DECREASED
     Route: 058
     Dates: start: 20201109, end: 20201110
  20. RECOMBINANT HUMAN GRANULOCYTE COLONY?STIMULATING FACTOR INJECTION [Concomitant]
     Indication: WHITE BLOOD CELL COUNT DECREASED
     Route: 058
     Dates: start: 20201116, end: 20201117
  21. DURVALUMAB. [Suspect]
     Active Substance: DURVALUMAB
     Indication: CERVIX CARCINOMA
     Route: 042
     Dates: start: 20201013, end: 20201013
  22. SODIUM POTASSIUM MAGNESIUM CALCIUN AND GLUCOSE INJECTION [Concomitant]
     Indication: ELECTROCUTION
     Route: 042
     Dates: start: 20201013, end: 20201013
  23. SODIUM POTASSIUM MAGNESIUM CALCIUN AND GLUCOSE INJECTION [Concomitant]
     Indication: ELECTROCUTION
     Dosage: 500.0ML ONCE/SINGLE ADMINISTRATION
     Route: 042
     Dates: start: 20201020, end: 20201020
  24. SODIUM POTASSIUM MAGNESIUM CALCIUN AND GLUCOSE INJECTION [Concomitant]
     Indication: ELECTROCUTION
     Dosage: 500.0ML ONCE/SINGLE ADMINISTRATION
     Route: 042
     Dates: start: 20201119, end: 20201119
  25. ONDANSETRON HYDROCHLORIDE TABLETS [Concomitant]
     Active Substance: ONDANSETRON HYDROCHLORIDE
     Indication: VOMITING
     Route: 048
     Dates: start: 20201119, end: 20201121
  26. LIDOCAINE HYDROCHLORIDE INJECTION [Concomitant]
     Active Substance: LIDOCAINE HYDROCHLORIDE
     Indication: LOCAL ANAESTHESIA
     Dosage: 0.1G ONCE/SINGLE ADMINISTRATION
     Route: 058
     Dates: start: 20201027, end: 20201027
  27. RECOMBINANT HUMAN INTERLEUKIN?11 FOR INJECTION [Concomitant]
     Indication: PLATELET COUNT DECREASED
     Route: 058
     Dates: start: 20201109, end: 20201113
  28. SODIUM POTASSIUM MAGNESIUM CALCIUN AND GLUCOSE INJECTION [Concomitant]
     Indication: ELECTROCUTION
     Dosage: 500.0ML ONCE/SINGLE ADMINISTRATION
     Route: 042
     Dates: start: 20201027, end: 20201027
  29. SODIUM POTASSIUM MAGNESIUM CALCIUN AND GLUCOSE INJECTION [Concomitant]
     Indication: ELECTROCUTION
     Dosage: 500.0ML ONCE/SINGLE ADMINISTRATION
     Route: 042
     Dates: start: 20201103, end: 20201103
  30. SODIUM POTASSIUM MAGNESIUM CALCIUN AND GLUCOSE INJECTION [Concomitant]
     Indication: ELECTROCUTION
     Dosage: 500.0ML ONCE/SINGLE ADMINISTRATION
     Route: 042
     Dates: start: 20201127, end: 20201127
  31. ONDANSETRON HYDROCHLORIDE TABLETS [Concomitant]
     Active Substance: ONDANSETRON HYDROCHLORIDE
     Indication: VOMITING
     Route: 048
     Dates: start: 20201027, end: 20201029
  32. ONDANSETRON HYDROCHLORIDE TABLETS [Concomitant]
     Active Substance: ONDANSETRON HYDROCHLORIDE
     Indication: ANTIBIOTIC PROPHYLAXIS
     Route: 048
     Dates: start: 20201127, end: 20201129
  33. RECOMBINANT HUMAN INTERLEUKIN?11 FOR INJECTION [Concomitant]
     Indication: PLATELET COUNT DECREASED
     Route: 058
     Dates: start: 20201105, end: 20201106
  34. CISPLATIN. [Suspect]
     Active Substance: CISPLATIN
     Indication: CERVIX CARCINOMA
     Route: 042
     Dates: start: 20201103, end: 20201103
  35. ONDANSETRON HYDROCHLORIDE TABLETS [Concomitant]
     Active Substance: ONDANSETRON HYDROCHLORIDE
     Indication: ANTIBIOTIC PROPHYLAXIS
     Route: 048
     Dates: start: 20201119, end: 20201121
  36. CISPLATIN. [Suspect]
     Active Substance: CISPLATIN
     Indication: CERVIX CARCINOMA
     Route: 042
     Dates: start: 20201013, end: 20201013
  37. ONDANSETRON HYDROCHLORIDE TABLETS [Concomitant]
     Active Substance: ONDANSETRON HYDROCHLORIDE
     Indication: ANTIBIOTIC PROPHYLAXIS
     Route: 048
     Dates: start: 20201013, end: 20201016
  38. ONDANSETRON HYDROCHLORIDE TABLETS [Concomitant]
     Active Substance: ONDANSETRON HYDROCHLORIDE
     Indication: ANTIBIOTIC PROPHYLAXIS
     Route: 048
     Dates: start: 20201027, end: 20201029
  39. HEPARIN SODIUM INJECTION [Concomitant]
     Active Substance: HEPARIN SODIUM
     Indication: WHITE CLOT IN BLOOD PRESENT
     Dosage: 25000.0IU ONCE/SINGLE ADMINISTRATION
     Route: 042
     Dates: start: 20201027, end: 20201027
  40. FOSAPREPITANT DIMEGLUMINER FOR INJECTION [Concomitant]
     Indication: ANTIBIOTIC PROPHYLAXIS
     Dosage: 150.0MG ONCE/SINGLE ADMINISTRATION
     Route: 042
     Dates: start: 20201013, end: 20201013
  41. RECOMBINANT HUMAN GRANULOCYTE COLONY?STIMULATING FACTOR INJECTION [Concomitant]
     Indication: WHITE BLOOD CELL COUNT DECREASED
     Route: 058
     Dates: start: 20201121, end: 20201122

REACTIONS (1)
  - Platelet count decreased [Recovered/Resolved]

NARRATIVE: CASE EVENT DATE: 20201208
